FAERS Safety Report 5395778-7 (Version None)
Quarter: 2007Q3

REPORT INFORMATION
  Report Type: 
  Country: None (occurrence: None)
  Receive Date: 20070724
  Receipt Date: 20070712
  Transmission Date: 20080115
  Serious: Yes (Death)
  Sender: FDA-Public Use
  Company Number: US-PFIZER INC-2007052592

PATIENT
  Sex: Male
  Weight: 111.1 kg

DRUGS (1)
  1. BEXTRA [Suspect]
     Route: 048
     Dates: start: 20020725, end: 20030902

REACTIONS (2)
  - AORTIC RUPTURE [None]
  - CEREBRAL INFARCTION [None]
